FAERS Safety Report 5099943-8 (Version None)
Quarter: 2006Q3

REPORT INFORMATION
  Report Type: 
  Country: None (occurrence: None)
  Receive Date: 20060906
  Receipt Date: 20060825
  Transmission Date: 20061208
  Serious: Yes (Other)
  Sender: FDA-Public Use
  Company Number: SPVI-2006-00607

PATIENT
  Sex: 0

DRUGS (1)
  1. AGRYLIN [Suspect]
     Indication: THROMBOCYTHAEMIA

REACTIONS (5)
  - ASTHENIA [None]
  - HEADACHE [None]
  - MYOCARDIAL INFARCTION [None]
  - PALPITATIONS [None]
  - PULMONARY EMBOLISM [None]
